FAERS Safety Report 8450684-6 (Version None)
Quarter: 2012Q2

REPORT INFORMATION
  Report Type: 
  Country: None (occurrence: None)
  Receive Date: 20120615
  Receipt Date: 20120615
  Transmission Date: 20120825
  Serious: Yes (Other)
  Sender: FDA-Public Use
  Company Number: None

PATIENT
  Sex: Male

DRUGS (9)
  1. ALPRAZOLAM [Suspect]
     Dosage: 0.5MG 4 TIMES A DAY  YEARS
  2. VASOTECH [Concomitant]
  3. FLOMAX [Concomitant]
  4. PLAVIX [Concomitant]
  5. FUROSEMIDE [Concomitant]
  6. TENAOL [Concomitant]
  7. STEROIDS [Concomitant]
  8. ALPRAZOLAM [Suspect]
     Dosage: 0.5MG 4 TIMES A DAY
  9. PREVACID [Concomitant]

REACTIONS (2)
  - PRODUCT SUBSTITUTION ISSUE [None]
  - DRUG INEFFECTIVE [None]
